FAERS Safety Report 4847008-X (Version None)
Quarter: 2005Q4

REPORT INFORMATION
  Report Type: 
  Country: None (occurrence: None)
  Receive Date: 20051207
  Receipt Date: 20051125
  Transmission Date: 20060501
  Serious: Yes (Hospitalization, Disabling)
  Sender: FDA-Public Use
  Company Number: JP-JNJFOC-20051102497

PATIENT
  Sex: Female

DRUGS (10)
  1. RISPERDAL [Suspect]
     Route: 048
  2. RISPERDAL [Suspect]
     Indication: SCHIZOPHRENIA
     Route: 048
  3. HALOPERIDOL [Interacting]
     Indication: SCHIZOPHRENIA
     Route: 030
  4. BIPERIDEN HYDROCHLORIDE TAB [Interacting]
     Route: 048
  5. BIPERIDEN HYDROCHLORIDE TAB [Interacting]
     Indication: SCHIZOPHRENIA
     Route: 048
  6. FLUPHENAZINE DECANOATE [Interacting]
     Indication: SCHIZOPHRENIA
     Route: 030
  7. CHLORPROMAZINE HYDROCHLORIDE/PROMETHAZINE HYDROCHLORIDE/PHENOBARBITAL [Interacting]
     Indication: SCHIZOPHRENIA
     Route: 048
  8. LEVOMEPROMAZINE MALEATE [Interacting]
     Indication: SCHIZOPHRENIA
     Route: 048
  9. OLANZAPINE [Interacting]
     Indication: SCHIZOPHRENIA
     Route: 048
  10. QUETIAPINE FUMARATE [Interacting]
     Indication: SCHIZOPHRENIA
     Route: 048

REACTIONS (2)
  - DRUG INTERACTION [None]
  - NEUROLEPTIC MALIGNANT SYNDROME [None]
